FAERS Safety Report 6983335-8 (Version None)
Quarter: 2010Q3

REPORT INFORMATION
  Report Type: 
  Country: None (occurrence: None)
  Receive Date: 20100910
  Receipt Date: 20100827
  Transmission Date: 20110219
  Serious: Yes (Other)
  Sender: FDA-Public Use
  Company Number: AUR-APL-2010-02196

PATIENT
  Age: 34 Year
  Sex: Male
  Weight: 70.29 kg

DRUGS (1)
  1. FINASTERIDE [Suspect]
     Indication: ALOPECIA
     Dosage: 1/4 TABLET - DAILY - PO
     Route: 048
     Dates: start: 20100825, end: 20100826

REACTIONS (3)
  - AGGRESSION [None]
  - FRUSTRATION [None]
  - SPONTANEOUS PENILE ERECTION [None]
